FAERS Safety Report 21278529 (Version 2)
Quarter: 2022Q3

REPORT INFORMATION
  Report Type: Other
  Country: AU (occurrence: AU)
  Receive Date: 20220901
  Receipt Date: 20220913
  Transmission Date: 20221027
  Serious: Yes (Other)
  Sender: FDA-Public Use
  Company Number: AU-TOLMAR, INC.-22AU036342

PATIENT
  Sex: Male

DRUGS (1)
  1. ELIGARD [Suspect]
     Active Substance: LEUPROLIDE ACETATE
     Indication: Prostate cancer
     Dosage: 45 MILLIGRAM, Q 6 MONTH
     Dates: start: 2018

REACTIONS (6)
  - Chronic kidney disease [Unknown]
  - Stiff person syndrome [Unknown]
  - Type 1 diabetes mellitus [Unknown]
  - Muscular weakness [Unknown]
  - Hot flush [Unknown]
  - Fatigue [Unknown]
